FAERS Safety Report 9843090 (Version 2)
Quarter: 2014Q1

REPORT INFORMATION
  Report Type: Spontaneous
  Country: US (occurrence: US)
  Receive Date: 20140124
  Receipt Date: 20140124
  Transmission Date: 20141002
  Serious: No
  Sender: FDA-Public Use
  Company Number: US-PFIZER INC-HQ9524507AUG2000

PATIENT
  Age: 31 Year
  Sex: Female
  Weight: 56.4 kg

DRUGS (4)
  1. EFFEXOR XR [Suspect]
     Indication: DYSTHYMIC DISORDER
     Dosage: 37.5 MG, DAILY
     Route: 048
     Dates: start: 20000411, end: 20000418
  2. EFFEXOR XR [Suspect]
     Dosage: 75 MG, 1X/DAY
     Route: 048
     Dates: start: 20000419, end: 20000505
  3. EFFEXOR XR [Suspect]
     Dosage: 150 MG, DAILY
     Route: 048
     Dates: start: 2000
  4. AMBIEN [Suspect]
     Indication: INSOMNIA
     Dosage: 10 MG, AT BEDTIME
     Route: 048
     Dates: start: 1999, end: 200005

REACTIONS (2)
  - Drug interaction [Unknown]
  - Drug effect decreased [Unknown]
